FAERS Safety Report 6035898-7 (Version None)
Quarter: 2009Q1

REPORT INFORMATION
  Report Type: 
  Country: None (occurrence: None)
  Receive Date: 20090113
  Receipt Date: 20090109
  Transmission Date: 20090719
  Serious: Yes (Hospitalization)
  Sender: FDA-Public Use
  Company Number: A0718187A

PATIENT
  Age: 38 Year
  Sex: Female
  Weight: 113.6 kg

DRUGS (12)
  1. AVANDIA [Suspect]
     Indication: TYPE 2 DIABETES MELLITUS
     Dosage: 4MG PER DAY
     Route: 048
     Dates: start: 20061127, end: 20070327
  2. HYDROCODONE BITARTRATE [Concomitant]
  3. LISINOPRIL [Concomitant]
  4. GLIMEPIRIDE [Concomitant]
  5. METFORMIN [Concomitant]
  6. AMARYL [Concomitant]
  7. LIPITOR [Concomitant]
  8. ALBUTEROL [Concomitant]
  9. FLOVENT [Concomitant]
  10. INSULIN [Concomitant]
  11. MEDROXYPROGESTERONE [Concomitant]
  12. NORVASC [Concomitant]

REACTIONS (2)
  - CARDIAC FAILURE CONGESTIVE [None]
  - HEART INJURY [None]
